FAERS Safety Report 25473229 (Version 1)
Quarter: 2025Q2

REPORT INFORMATION
  Report Type: Spontaneous
  Country: US (occurrence: None)
  Receive Date: 20250623
  Receipt Date: 20250623
  Transmission Date: 20250717
  Serious: Yes (Other)
  Sender: FDA-CTU
  Company Number: None

PATIENT
  Age: 26 Year
  Sex: Female
  Weight: 73.03 kg

DRUGS (2)
  1. KETOCONAZOLE [Suspect]
     Active Substance: KETOCONAZOLE
     Indication: Cushing^s syndrome
     Dosage: FREQUENCY : DAILY;?
     Route: 048
     Dates: end: 20240805
  2. SIGNIFOR [Suspect]
     Active Substance: PASIREOTIDE DIASPARTATE
     Indication: Cushing^s syndrome
     Dosage: FREQUENCY : TWICE A DAY;?
     Route: 058
     Dates: end: 20250527

REACTIONS (7)
  - Gastrointestinal disorder [None]
  - Nausea [None]
  - Vomiting [None]
  - Headache [None]
  - Dizziness [None]
  - Loss of personal independence in daily activities [None]
  - Job dissatisfaction [None]

NARRATIVE: CASE EVENT DATE: 20240805
